FAERS Safety Report 6801234-9 (Version None)
Quarter: 2010Q2

REPORT INFORMATION
  Report Type: 
  Country: None (occurrence: None)
  Receive Date: 20100629
  Receipt Date: 20100618
  Transmission Date: 20101027
  Serious: Yes (Hospitalization, Disabling, Other)
  Sender: FDA-Public Use
  Company Number: US-BAXTER-2010BH007127

PATIENT
  Age: 5 Month
  Sex: Male
  Weight: 4 kg

DRUGS (1)
  1. TIS-U-SOL [Suspect]
     Indication: DRUG USE FOR UNKNOWN INDICATION
     Route: 048
     Dates: start: 20080512, end: 20080512

REACTIONS (8)
  - ABDOMINAL DISTENSION [None]
  - ABNORMAL FAECES [None]
  - DEHYDRATION [None]
  - DEVICE LEAKAGE [None]
  - FAECES DISCOLOURED [None]
  - FOOD INTOLERANCE [None]
  - VOMITING [None]
  - WRONG DRUG ADMINISTERED [None]
